FAERS Safety Report 4623451-9 (Version None)
Quarter: 2005Q1

REPORT INFORMATION
  Report Type: 
  Country: None (occurrence: None)
  Receive Date: 20050330
  Receipt Date: 20050317
  Transmission Date: 20050727
  Serious: Yes (Hospitalization)
  Sender: FDA-Public Use
  Company Number: 2005046724

PATIENT
  Age: 62 Year
  Sex: Female

DRUGS (3)
  1. SORTIS (ATORVASTATIN) [Suspect]
     Indication: ILL-DEFINED DISORDER
     Dosage: ORAL
     Route: 048
     Dates: start: 20040101, end: 20050101
  2. POLYVIDONE (POLYVIDONE) [Concomitant]
  3. OTHER ANTI-ASTHMATICS, INHALANTS (OTHER ANTI-ASTHMATICS, INHALANTS) [Concomitant]

REACTIONS (5)
  - ERYTHEMA [None]
  - EXANTHEM [None]
  - LICHEN PLANUS [None]
  - PRURITUS [None]
  - SKIN DISORDER [None]
